FAERS Safety Report 10724777 (Version 2)
Quarter: 2015Q2

REPORT INFORMATION
  Report Type: Spontaneous
  Country: IT (occurrence: IT)
  Receive Date: 20150120
  Receipt Date: 20150419
  Transmission Date: 20150821
  Serious: Yes (Other)
  Sender: FDA-Public Use
  Company Number: IT-B.I. PHARMACEUTICALS,INC./RIDGEFIELD-2015-BI-02504IT

PATIENT
  Age: 85 Year
  Sex: Female
  Weight: 88 kg

DRUGS (1)
  1. PRADAXA [Suspect]
     Active Substance: DABIGATRAN ETEXILATE MESYLATE
     Indication: ATRIAL FIBRILLATION
     Dosage: 220 MG
     Route: 048
     Dates: start: 20140501, end: 20140718

REACTIONS (3)
  - Coagulation time abnormal [Unknown]
  - Epistaxis [Unknown]
  - Ecchymosis [Unknown]

NARRATIVE: CASE EVENT DATE: 20140613
